FAERS Safety Report 24388217 (Version 1)
Quarter: 2024Q4

REPORT INFORMATION
  Report Type: Report from Study
  Country: US (occurrence: US)
  Receive Date: 20241002
  Receipt Date: 20241002
  Transmission Date: 20250115
  Serious: Yes (Hospitalization, Other)
  Sender: BAYER
  Company Number: US-BAYER-2024A137726

PATIENT
  Age: 70 Year
  Sex: Female

DRUGS (2)
  1. ADEMPAS [Suspect]
     Active Substance: RIOCIGUAT
     Indication: Pulmonary arterial hypertension
     Dosage: UNK
  2. ADEMPAS [Suspect]
     Active Substance: RIOCIGUAT
     Indication: Pulmonary arterial hypertension
     Dosage: 2 MG, TID
     Route: 048
     Dates: start: 202409

REACTIONS (11)
  - Loss of consciousness [None]
  - Vertigo [None]
  - Fall [None]
  - Haemorrhage [None]
  - Skull fractured base [None]
  - Skin abrasion [None]
  - Joint swelling [None]
  - Gait inability [None]
  - Blood pressure systolic decreased [None]
  - Orthostatic hypotension [None]
  - Product dose omission issue [None]

NARRATIVE: CASE EVENT DATE: 20240901
